FAERS Safety Report 5858788-9 (Version None)
Quarter: 2008Q3

REPORT INFORMATION
  Report Type: 
  Country: None (occurrence: None)
  Receive Date: 20080818
  Receipt Date: 20080502
  Transmission Date: 20090109
  Serious: No
  Sender: FDA-Public Use
  Company Number: WAES 0804USA03662

PATIENT
  Age: 57 Year
  Sex: Male
  Weight: 78.9259 kg

DRUGS (10)
  1. JANUVIA [Suspect]
     Indication: TYPE 2 DIABETES MELLITUS
     Dosage: 100 MG/DAILY/PO
     Route: 048
     Dates: start: 20080101, end: 20080101
  2. ALTACE [Concomitant]
  3. FLOMAX (MORNIFLUMATE) [Concomitant]
  4. PROSCAR [Concomitant]
  5. AMLODIPINE BESYLATE [Concomitant]
  6. GABAPENTIN [Concomitant]
  7. GLYBURIDE [Concomitant]
  8. METFORMIN [Concomitant]
  9. METOPROLOL [Concomitant]
  10. OMEPRAZOLE [Concomitant]

REACTIONS (3)
  - AGEUSIA [None]
  - ANOSMIA [None]
  - UPPER RESPIRATORY TRACT INFECTION [None]
